FAERS Safety Report 6786050-9 (Version None)
Quarter: 2010Q2

REPORT INFORMATION
  Report Type: 
  Country: None (occurrence: None)
  Receive Date: 20100623
  Receipt Date: 20100609
  Transmission Date: 20101027
  Serious: Yes (Other)
  Sender: FDA-Public Use
  Company Number: PHHY2010US37617

PATIENT
  Age: 69 Year
  Sex: Female

DRUGS (1)
  1. ZOMETA [Suspect]
     Indication: METASTASES TO BONE
     Route: 065

REACTIONS (26)
  - ALPHA HAEMOLYTIC STREPTOCOCCAL INFECTION [None]
  - ASTHENIA [None]
  - BACTEROIDES INFECTION [None]
  - BONE EROSION [None]
  - DEBRIDEMENT [None]
  - DEPRESSED LEVEL OF CONSCIOUSNESS [None]
  - ERYTHEMA [None]
  - FUSOBACTERIUM INFECTION [None]
  - INCISIONAL DRAINAGE [None]
  - LOCAL SWELLING [None]
  - MUSCLE NECROSIS [None]
  - MYOSITIS [None]
  - NECK PAIN [None]
  - NECROTISING FASCIITIS STREPTOCOCCAL [None]
  - OEDEMA [None]
  - OSTEONECROSIS OF JAW [None]
  - PEPTOSTREPTOCOCCUS INFECTION [None]
  - PYREXIA [None]
  - SEQUESTRECTOMY [None]
  - SOFT TISSUE INFLAMMATION [None]
  - SOFT TISSUE NECROSIS [None]
  - STREPTOCOCCAL INFECTION [None]
  - SURGERY [None]
  - TACHYCARDIA [None]
  - TACHYPNOEA [None]
  - TOOTH EXTRACTION [None]
